FAERS Safety Report 6724084-0 (Version None)
Quarter: 2010Q2

REPORT INFORMATION
  Report Type: 
  Country: None (occurrence: None)
  Receive Date: 20100513
  Receipt Date: 20100505
  Transmission Date: 20101027
  Serious: Yes (Other)
  Sender: FDA-Public Use
  Company Number: B0652166A

PATIENT
  Sex: Female

DRUGS (1)
  1. NEOTIGASON [Suspect]
     Indication: LICHEN SCLEROSUS
     Dosage: 10MG TWICE PER DAY
     Route: 065
     Dates: start: 20100201, end: 20100301

REACTIONS (2)
  - SKIN ULCER [None]
  - VASCULITIS [None]
